FAERS Safety Report 21519008 (Version 4)
Quarter: 2023Q2

REPORT INFORMATION
  Report Type: Report from Study
  Country: US (occurrence: US)
  Receive Date: 20221028
  Receipt Date: 20230519
  Transmission Date: 20230721
  Serious: Yes (Death, Hospitalization, Other)
  Sender: FDA-Public Use
  Company Number: US-ACADIA PHARMACEUTICALS INC.-ACA-2022-PIM-003645

PATIENT
  Age: 71 Year
  Sex: Male

DRUGS (8)
  1. NUPLAZID [Suspect]
     Active Substance: PIMAVANSERIN TARTRATE
     Indication: Parkinson^s disease psychosis
     Dosage: 34 MILLIGRAM, QD
     Route: 065
     Dates: start: 202209
  2. CARBIDOPA [Concomitant]
     Active Substance: CARBIDOPA
  3. MIDODRINE [Concomitant]
     Active Substance: MIDODRINE
  4. SEROQUEL [Concomitant]
     Active Substance: QUETIAPINE FUMARATE
  5. ALLOPURINOL [Concomitant]
     Active Substance: ALLOPURINOL
  6. ENTACAPONE [Concomitant]
     Active Substance: ENTACAPONE
  7. TYLENOL [Concomitant]
     Active Substance: ACETAMINOPHEN
  8. FLUDROCORTISONE [Concomitant]
     Active Substance: FLUDROCORTISONE

REACTIONS (4)
  - Death [Fatal]
  - Hip fracture [Recovered/Resolved]
  - Sleep terror [Recovered/Resolved]
  - Hallucination [Recovered/Resolved]

NARRATIVE: CASE EVENT DATE: 20220602
